FAERS Safety Report 24000023 (Version 1)
Quarter: 2024Q2

REPORT INFORMATION
  Report Type: Spontaneous
  Country: US (occurrence: None)
  Receive Date: 20240621
  Receipt Date: 20240621
  Transmission Date: 20240715
  Serious: Yes (Hospitalization)
  Sender: FDA-Public Use
  Company Number: None

PATIENT
  Age: 69 Year
  Sex: Female
  Weight: 62.6 kg

DRUGS (7)
  1. CYCLOPHOSPHAMIDE [Suspect]
     Active Substance: CYCLOPHOSPHAMIDE
     Dates: end: 20240522
  2. CYTARABINE [Suspect]
     Active Substance: CYTARABINE
     Dates: end: 20240520
  3. SPRYCEL [Suspect]
     Active Substance: DASATINIB
     Dates: end: 20240604
  4. DEXAMETHASONE [Suspect]
     Active Substance: DEXAMETHASONE
     Dates: start: 20240602
  5. DOXORUBICIN HYDROCHLORIDE [Suspect]
     Active Substance: DOXORUBICIN HYDROCHLORIDE
     Dates: end: 20240523
  6. METHOTREXATE [Suspect]
     Active Substance: METHOTREXATE
     Dates: end: 20240528
  7. VINCRISTINE SULFATE [Suspect]
     Active Substance: VINCRISTINE SULFATE
     Dates: end: 20240530

REACTIONS (5)
  - Febrile neutropenia [None]
  - White blood cell count decreased [None]
  - Platelet count decreased [None]
  - Bacteraemia [None]
  - Toxicity to various agents [None]

NARRATIVE: CASE EVENT DATE: 20240605
